FAERS Safety Report 23815547 (Version 1)
Quarter: 2024Q2

REPORT INFORMATION
  Report Type: Spontaneous
  Country: US (occurrence: US)
  Receive Date: 20240503
  Receipt Date: 20240503
  Transmission Date: 20240715
  Serious: Yes (Other)
  Sender: FDA-Public Use
  Company Number: US-SANDOZ-SDZ2024US044766

PATIENT
  Age: 13 Year
  Sex: Female

DRUGS (2)
  1. DOXYCYCLINE [Suspect]
     Active Substance: DOXYCYCLINE
     Indication: Proteinuria
     Dosage: UNK
     Route: 065
  2. ENALAPRIL [Suspect]
     Active Substance: ENALAPRIL
     Indication: Proteinuria
     Dosage: UNK
     Route: 065

REACTIONS (3)
  - Cushing^s syndrome [Unknown]
  - Urinary incontinence [Unknown]
  - Product use in unapproved indication [Unknown]
